FAERS Safety Report 20968184 (Version 1)
Quarter: 2022Q2

REPORT INFORMATION
  Report Type: Spontaneous
  Country: CN (occurrence: CN)
  Receive Date: 20220616
  Receipt Date: 20220616
  Transmission Date: 20220721
  Serious: Yes (Hospitalization)
  Sender: FDA-Public Use
  Company Number: CN-ZAILAB-ZAI202200056

PATIENT
  Age: 57 Year
  Sex: Male
  Weight: 50 kg

DRUGS (2)
  1. QINLOCK [Suspect]
     Active Substance: RIPRETINIB
     Indication: Gastrointestinal stromal tumour
     Dosage: 150 MG, DAILY
     Route: 048
     Dates: start: 20211117, end: 202201
  2. QINLOCK [Suspect]
     Active Substance: RIPRETINIB
     Dosage: 100 MG, DAILY
     Route: 048
     Dates: start: 202201, end: 20220301

REACTIONS (3)
  - Pyrexia [Recovering/Resolving]
  - Discomfort [Unknown]
  - Alopecia [Unknown]

NARRATIVE: CASE EVENT DATE: 20211201
